FAERS Safety Report 17252164 (Version 1)
Quarter: 2020Q1

REPORT INFORMATION
  Report Type: Spontaneous
  Country: US (occurrence: US)
  Receive Date: 20200109
  Receipt Date: 20200109
  Transmission Date: 20200409
  Serious: No
  Sender: FDA-Public Use
  Company Number: US-PFIZER INC-2020008016

PATIENT
  Age: 34 Year

DRUGS (4)
  1. TOFACITINIB [Suspect]
     Active Substance: TOFACITINIB
     Indication: ARTHRALGIA
  2. TOFACITINIB [Suspect]
     Active Substance: TOFACITINIB
     Indication: ARTHROPATHY
  3. TOFACITINIB [Suspect]
     Active Substance: TOFACITINIB
     Indication: EOSINOPHILIC OESOPHAGITIS
     Dosage: UNK
  4. TOFACITINIB [Suspect]
     Active Substance: TOFACITINIB
     Indication: GASTROINTESTINAL DISORDER

REACTIONS (2)
  - Drug ineffective for unapproved indication [Unknown]
  - Off label use [Unknown]
